FAERS Safety Report 8158722-5 (Version None)
Quarter: 2012Q1

REPORT INFORMATION
  Report Type: 
  Country: None (occurrence: None)
  Receive Date: 20120223
  Receipt Date: 20120213
  Transmission Date: 20120608
  Serious: Yes (Other)
  Sender: FDA-Public Use
  Company Number: US-JNJFOC-20120206361

PATIENT
  Sex: Female
  Weight: 81.65 kg

DRUGS (8)
  1. LISINOPRIL [Concomitant]
     Indication: BLOOD PRESSURE
     Route: 048
     Dates: start: 20100101
  2. VITAMIN D [Concomitant]
     Indication: NUTRITIONAL SUPPORT
     Route: 048
     Dates: start: 20110101
  3. BIOTIN [Concomitant]
     Indication: HAIR GROWTH ABNORMAL
     Dates: start: 20090101
  4. ^ARTHRITIS MEDICINE^ [Concomitant]
     Indication: ARTHRITIS
     Dosage: 500MG/TABLET/500MG/2 TABLETS IN THE MORNING AND TABLETS AT NIGHTTIME/ORAL
     Route: 048
     Dates: start: 20110101
  5. FOLIC ACID [Concomitant]
     Indication: IMMUNE ENHANCEMENT THERAPY
     Route: 048
     Dates: start: 20090101
  6. BIOTIN [Concomitant]
     Indication: NAIL DISORDER
     Dates: start: 20090101
  7. REMICADE [Suspect]
     Indication: ARTHRITIS
     Route: 042
     Dates: start: 20111201
  8. METOPROLOL [Concomitant]
     Indication: BLOOD PRESSURE
     Route: 048
     Dates: start: 20090101

REACTIONS (5)
  - ASTHENIA [None]
  - FATIGUE [None]
  - HYPOKINESIA [None]
  - WEIGHT INCREASED [None]
  - BODY HEIGHT DECREASED [None]
